FAERS Safety Report 7315173-0 (Version None)
Quarter: 2011Q1

REPORT INFORMATION
  Report Type: 
  Country: None (occurrence: None)
  Receive Date: 20110225
  Receipt Date: 20110215
  Transmission Date: 20110831
  Serious: Yes (Other)
  Sender: FDA-Public Use
  Company Number: US-ROCHE-734148

PATIENT
  Sex: Female
  Weight: 47.6 kg

DRUGS (7)
  1. ACCUTANE [Suspect]
     Dosage: 2 MONTHS THERAPY
     Route: 065
     Dates: start: 19860401, end: 19860501
  2. ACCUTANE [Suspect]
     Indication: ACNE
     Route: 065
     Dates: start: 19820601
  3. ACCUTANE [Suspect]
     Dosage: THERAPY FOR 18 DAYS.
     Route: 065
     Dates: start: 19861118
  4. ACCUTANE [Suspect]
     Route: 065
     Dates: start: 19850520, end: 19850903
  5. ACCUTANE [Suspect]
     Route: 065
     Dates: start: 19831001, end: 19840101
  6. ACCUTANE [Suspect]
     Route: 065
     Dates: start: 19840601, end: 19840801
  7. ACCUTANE [Suspect]
     Route: 065
     Dates: start: 19870629, end: 19881115

REACTIONS (10)
  - FIBROMYALGIA [None]
  - COLITIS ULCERATIVE [None]
  - MIGRAINE [None]
  - GASTROINTESTINAL INJURY [None]
  - OSTEOARTHRITIS [None]
  - ANGIOPATHY [None]
  - INFLAMMATORY BOWEL DISEASE [None]
  - DEPRESSION [None]
  - ARTHRITIS [None]
  - CHAPPED LIPS [None]
